FAERS Safety Report 4695095-4 (Version None)
Quarter: 2005Q2

REPORT INFORMATION
  Report Type: 
  Country: None (occurrence: None)
  Receive Date: 20050617
  Receipt Date: 20050610
  Transmission Date: 20051028
  Serious: Yes (Hospitalization)
  Sender: FDA-Public Use
  Company Number: 2005047622

PATIENT
  Age: 47 Year
  Sex: Female

DRUGS (2)
  1. DIFLUCAN [Suspect]
     Indication: VAGINAL MYCOSIS
     Dosage: 150 MG (150 MG), ORAL
     Route: 048
     Dates: start: 20050301, end: 20050301
  2. DILTIAZEM [Concomitant]

REACTIONS (4)
  - DRUG ERUPTION [None]
  - ERYTHEMA [None]
  - PRURITUS [None]
  - VULVITIS [None]
